FAERS Safety Report 12190996 (Version 1)
Quarter: 2016Q1

REPORT INFORMATION
  Report Type: Spontaneous
  Country: IR (occurrence: None)
  Receive Date: 20160317
  Receipt Date: 20160317
  Transmission Date: 20160526
  Serious: Yes (Other)
  Sender: FDA-Public Use
  Company Number: None

PATIENT
  Age: 28 Year
  Sex: Male
  Weight: 78 kg

DRUGS (1)
  1. ALOPEXY 5% PIERRE FABRE [Suspect]
     Active Substance: MINOXIDIL
     Indication: ALOPECIA
     Dosage: 1 USE BID TOPICAL
     Route: 061

REACTIONS (1)
  - Angioedema [None]

NARRATIVE: CASE EVENT DATE: 20160316
